FAERS Safety Report 14667173 (Version 2)
Quarter: 2018Q4

REPORT INFORMATION
  Report Type: Spontaneous
  Country: FR (occurrence: FR)
  Receive Date: 20180322
  Receipt Date: 20181026
  Transmission Date: 20190204
  Serious: Yes (Other)
  Sender: FDA-Public Use
  Company Number: FR-MERCK KGAA-2044282

PATIENT
  Sex: Female

DRUGS (1)
  1. EUTHYROX [Suspect]
     Active Substance: LEVOTHYROXINE SODIUM
     Indication: PRODUCT USED FOR UNKNOWN INDICATION

REACTIONS (21)
  - Vision blurred [None]
  - Memory impairment [None]
  - Arthralgia [Recovering/Resolving]
  - Depression [Recovering/Resolving]
  - Heart rate abnormal [Recovering/Resolving]
  - Insomnia [Recovering/Resolving]
  - Irritability [Recovering/Resolving]
  - Headache [Recovering/Resolving]
  - Blood pressure abnormal [Recovering/Resolving]
  - Gastrointestinal disorder [Recovering/Resolving]
  - Fatigue [Recovering/Resolving]
  - Myalgia [Recovering/Resolving]
  - Dizziness [Recovering/Resolving]
  - Disturbance in attention [None]
  - Muscle spasms [Recovering/Resolving]
  - Exophthalmos [Recovering/Resolving]
  - Anxiety [Recovering/Resolving]
  - Lacrimation increased [None]
  - Partner stress [None]
  - Pain [None]
  - Social avoidant behaviour [None]
